FAERS Safety Report 4542057-3 (Version None)
Quarter: 2004Q4

REPORT INFORMATION
  Report Type: 
  Country: None (occurrence: None)
  Receive Date: 20041227
  Receipt Date: 20041214
  Transmission Date: 20050328
  Serious: Yes (Other)
  Sender: FDA-Public Use
  Company Number: 2004115010

PATIENT
  Age: 48 Year
  Sex: Female
  Weight: 61.2356 kg

DRUGS (5)
  1. CELEBREX [Suspect]
     Indication: OSTEOARTHRITIS
  2. CELEBREX [Suspect]
     Indication: PAIN
  3. ATENOLOL [Concomitant]
  4. ALENDRONATE (ALENDRONATE) [Concomitant]
  5. AMLODIPINE BESYLATE [Concomitant]

REACTIONS (2)
  - THERAPY NON-RESPONDER [None]
  - THROAT TIGHTNESS [None]
